FAERS Safety Report 8267988-2 (Version None)
Quarter: 2012Q2

REPORT INFORMATION
  Report Type: 
  Country: None (occurrence: None)
  Receive Date: 20120409
  Receipt Date: 20120406
  Transmission Date: 20120825
  Serious: Yes (Other)
  Sender: FDA-Public Use
  Company Number: US-PFIZER INC-2012087491

PATIENT
  Sex: Male

DRUGS (1)
  1. PREPARATION H HEMORRHOIDAL SUPPOSITORIES [Suspect]
     Indication: HAEMORRHOIDS
     Dosage: UNK, AS NEEDED

REACTIONS (2)
  - ABDOMINAL DISTENSION [None]
  - HAEMORRHAGE [None]
